FAERS Safety Report 13318713 (Version 1)
Quarter: 2017Q1

REPORT INFORMATION
  Report Type: Spontaneous
  Country: US (occurrence: US)
  Receive Date: 20170309
  Receipt Date: 20170309
  Transmission Date: 20170428
  Serious: No
  Sender: FDA-Public Use
  Company Number: None

PATIENT
  Age: 82 Year
  Sex: Female
  Weight: 64.92 kg

DRUGS (6)
  1. FATMOTIDINE [Concomitant]
  2. ATENOLOL. [Concomitant]
     Active Substance: ATENOLOL
  3. CALCIUM [Concomitant]
     Active Substance: CALCIUM
  4. VITAMIN D3 [Concomitant]
     Active Substance: CHOLECALCIFEROL
  5. PREVAGEN [Concomitant]
     Active Substance: DIETARY SUPPLEMENT
  6. PROLIA [Suspect]
     Active Substance: DENOSUMAB
     Indication: BLOOD CALCIUM
     Dosage: INJECTION IN THE STOMACH
     Dates: start: 20170104

REACTIONS (15)
  - Bone pain [None]
  - Oropharyngeal pain [None]
  - Incontinence [None]
  - Pain in extremity [None]
  - Cough [None]
  - Ear pain [None]
  - Muscle spasms [None]
  - Dyspnoea [None]
  - Stomatitis [None]
  - Toothache [None]
  - Asthenia [None]
  - Myalgia [None]
  - Pulmonary pain [None]
  - Chromaturia [None]
  - Arthralgia [None]

NARRATIVE: CASE EVENT DATE: 20170104
